FAERS Safety Report 10048836 (Version 1)
Quarter: 2014Q1

REPORT INFORMATION
  Report Type: Report from Study
  Country: US (occurrence: US)
  Receive Date: 20140331
  Receipt Date: 20140331
  Transmission Date: 20141002
  Serious: Yes (Hospitalization)
  Sender: FDA-Public Use
  Company Number: PHHY2014US035890

PATIENT
  Age: 48 Year
  Sex: Female

DRUGS (21)
  1. CALCIUM FOLINATE [Suspect]
     Indication: COLORECTAL CANCER METASTATIC
     Dosage: 400 MG, UNK
     Route: 042
     Dates: start: 20130723, end: 20131029
  2. CALCIUM FOLINATE [Suspect]
     Dosage: UNK
     Dates: start: 20131112
  3. BEVACIZUMAB [Suspect]
     Indication: COLORECTAL CANCER METASTATIC
     Dosage: 5 MG/KG, UNK
     Route: 042
     Dates: start: 20130723
  4. BEVACIZUMAB [Suspect]
     Dosage: 5 MG/KG, UNK
     Dates: start: 20131015, end: 20131029
  5. BEVACIZUMAB [Suspect]
     Route: 065
     Dates: start: 20131112
  6. IRINOTECAN [Suspect]
     Indication: COLORECTAL CANCER METASTATIC
     Dosage: 180 MG, UNK
     Route: 042
     Dates: start: 20130820, end: 20131029
  7. IRINOTECAN [Suspect]
     Dates: start: 20131112
  8. 5-FLUOROURACIL [Suspect]
     Indication: COLORECTAL CANCER METASTATIC
     Dosage: 2400 MG, UNK
     Route: 042
     Dates: start: 20130723, end: 20131015
  9. 5-FLUOROURACIL [Suspect]
     Dosage: 400 MG, UNK
     Route: 040
     Dates: start: 20131015, end: 20131029
  10. 5-FLUOROURACIL [Suspect]
     Dosage: UNK
     Route: 042
     Dates: start: 20131112
  11. 5-FLUOROURACIL [Suspect]
     Dosage: UNK
     Route: 040
     Dates: start: 20131112
  12. OXALIPLATIN [Suspect]
     Indication: COLON CANCER
     Dosage: 85 MG/M2, UNK
     Route: 042
     Dates: start: 20130723, end: 20131001
  13. BENICAR HCT [Concomitant]
     Dates: start: 20130612
  14. DEXAMETHASONE [Concomitant]
     Dosage: 4 MG, UNK
     Dates: start: 20130718
  15. DIPHENOXYLATE/ATROPINE [Concomitant]
     Dosage: TOTAL DAILY DOSE 7.5-0.075
     Dates: start: 20130905
  16. IBUPROFEN [Concomitant]
     Dosage: 600 MG, UNK
     Dates: start: 20130710
  17. LABETALOL HCL [Concomitant]
     Dosage: 1200 MG, UNK
     Dates: start: 20130612
  18. PROCHLORPERAZINE MALEATE [Concomitant]
     Dosage: 10 MG, UNK
     Dates: start: 20130718
  19. LIDOCAINE AND PRILOCAINE [Concomitant]
     Dosage: TOTAL DOSE 2-2.5 PERCENT
     Dates: start: 20130718
  20. AMLODIPINE BESYLATE [Concomitant]
     Dosage: 2.5 MG, UNK
     Dates: start: 20131015
  21. COLACE [Concomitant]
     Dosage: 200 MG, UNK
     Dates: start: 20130710

REACTIONS (5)
  - Device related infection [Recovered/Resolved]
  - Discomfort [Unknown]
  - Pain [Unknown]
  - Body temperature increased [Unknown]
  - Erythema [Unknown]
